FAERS Safety Report 4429238-4 (Version None)
Quarter: 2004Q3

REPORT INFORMATION
  Report Type: 
  Country: None (occurrence: None)
  Receive Date: 20040817
  Receipt Date: 20040817
  Transmission Date: 20050211
  Serious: Yes (Death)
  Sender: FDA-Public Use
  Company Number: None

PATIENT
  Age: 25 Year
  Sex: Male

DRUGS (2)
  1. TESTOSTERONE [Suspect]
     Indication: MUSCLE MASS
  2. TESTOSTERONE [Suspect]

REACTIONS (5)
  - CARDIAC ARREST [None]
  - HEPATIC FAILURE [None]
  - PULMONARY HAEMORRHAGE [None]
  - RENAL FAILURE [None]
  - SELF-MEDICATION [None]
